FAERS Safety Report 5004579-0 (Version None)
Quarter: 2006Q2

REPORT INFORMATION
  Report Type: 
  Country: None (occurrence: None)
  Receive Date: 20060512
  Receipt Date: 20060509
  Transmission Date: 20061013
  Serious: Yes (Life-Threatening, Hospitalization)
  Sender: FDA-Public Use
  Company Number: 1343-13233

PATIENT
  Age: 49 Year
  Sex: Female

DRUGS (7)
  1. VIRACEPT [Suspect]
     Indication: HIV TEST POSITIVE
     Dosage: 2250 MG (TID), ORAL
     Route: 048
     Dates: start: 19971009, end: 19971112
  2. LAMIVUDINE [Suspect]
     Indication: HIV TEST POSITIVE
     Dosage: 300 MG (BID), ORAL
     Route: 048
  3. ZIDOVUDINE [Suspect]
     Indication: HIV TEST POSITIVE
     Dosage: 200 MG (BID), ORAL
     Route: 048
  4. FLUCONAZOLE [Suspect]
     Indication: FUNGAL INFECTION
     Dosage: (3 X/WK), ORAL
     Route: 048
     Dates: start: 19950101, end: 19971112
  5. OMEPRAZOLE [Suspect]
     Indication: GASTROOESOPHAGEAL REFLUX DISEASE
     Dosage: 20 MG (QD), ORAL
     Route: 048
     Dates: start: 19970403, end: 19971112
  6. OMEPRAZOLE [Suspect]
     Indication: PEPTIC ULCER
     Dosage: 20 MG (QD), ORAL
     Route: 048
     Dates: start: 19970403, end: 19971112
  7. DAPSONE [Concomitant]

REACTIONS (4)
  - BLOOD MAGNESIUM INCREASED [None]
  - DIZZINESS [None]
  - ELECTROCARDIOGRAM QT PROLONGED [None]
  - TORSADE DE POINTES [None]
